FAERS Safety Report 9161655 (Version 3)
Quarter: 2013Q2

REPORT INFORMATION
  Report Type: Spontaneous
  Country: SE (occurrence: SE)
  Receive Date: 20130314
  Receipt Date: 20130607
  Transmission Date: 20140414
  Serious: Yes (Other)
  Sender: FDA-Public Use
  Company Number: SE-AMGEN-SWESP2013017566

PATIENT
  Age: 63 Year
  Sex: Female

DRUGS (1)
  1. ENBREL [Suspect]
     Indication: RHEUMATOID ARTHRITIS
     Dosage: 50 MG, WEEKLY
     Route: 065
     Dates: start: 20111101

REACTIONS (5)
  - Infection susceptibility increased [Recovering/Resolving]
  - Respiratory tract irritation [Recovering/Resolving]
  - Cough [Recovering/Resolving]
  - Arthralgia [Unknown]
  - Nasopharyngitis [Recovering/Resolving]
